FAERS Safety Report 10418391 (Version 1)
Quarter: 2014Q3

REPORT INFORMATION
  Report Type: Spontaneous
  Country: US (occurrence: US)
  Receive Date: 20140829
  Receipt Date: 20140829
  Transmission Date: 20150326
  Serious: Yes (Hospitalization, Other)
  Sender: FDA-Public Use
  Company Number: US-ELI_LILLY_AND_COMPANY-US201408007124

PATIENT
  Sex: Female

DRUGS (3)
  1. HUMALOG [Suspect]
     Active Substance: INSULIN LISPRO
     Indication: TYPE 2 DIABETES MELLITUS
     Dosage: UNK
     Route: 065
  2. HUMALOG [Suspect]
     Active Substance: INSULIN LISPRO
     Indication: TYPE 2 DIABETES MELLITUS
     Dosage: UNK
     Route: 065
  3. LANTUS [Concomitant]
     Active Substance: INSULIN GLARGINE
     Dosage: UNK

REACTIONS (16)
  - Drug dose omission [Unknown]
  - Nerve injury [Unknown]
  - Fibromyalgia [Unknown]
  - Fall [Unknown]
  - Injury associated with device [Unknown]
  - Blood glucose increased [Unknown]
  - Dysstasia [Unknown]
  - Glycosylated haemoglobin increased [Unknown]
  - Chest pain [Unknown]
  - Arthritis [Unknown]
  - Loss of consciousness [Unknown]
  - Gait disturbance [Unknown]
  - Injury [Unknown]
  - Pruritus [Unknown]
  - Malaise [Unknown]
  - Hypersensitivity [Unknown]
